FAERS Safety Report 10214545 (Version 1)
Quarter: 2014Q2

REPORT INFORMATION
  Report Type: Spontaneous
  Country: US (occurrence: US)
  Receive Date: 20140603
  Receipt Date: 20140603
  Transmission Date: 20141212
  Serious: Yes (Other)
  Sender: FDA-Public Use
  Company Number: US-GLAXOSMITHKLINE-A1071302A

PATIENT
  Sex: Female

DRUGS (4)
  1. LAMICTAL [Suspect]
     Indication: PRODUCT USED FOR UNKNOWN INDICATION
     Route: 065
  2. KEPPRA [Suspect]
     Indication: PRODUCT USED FOR UNKNOWN INDICATION
     Route: 065
  3. LAMOTRIGINE [Suspect]
     Indication: CONVULSION
     Dosage: 150MG UNKNOWN
     Route: 065
  4. NO CONCURRENT MEDICATION [Concomitant]

REACTIONS (5)
  - Convulsion [Not Recovered/Not Resolved]
  - Brain operation [Unknown]
  - Autoimmune disorder [Unknown]
  - Epilepsy [Unknown]
  - Hypersensitivity [Unknown]
